FAERS Safety Report 8270471 (Version 2)
Quarter: 2013Q2

REPORT INFORMATION
  Report Type: Spontaneous
  Country: US (occurrence: None)
  Receive Date: 20111122
  Receipt Date: 20120703
  Transmission Date: 20140414
  Serious: No
  Sender: FDA-Public Use
  Company Number: PHHY2011US66221

PATIENT
  Age: 36 Year
  Sex: Female
  Weight: 77.1 kg

DRUGS (5)
  1. GILENYA (FTY) CAPSULE, 0.5MG [Suspect]
     Route: 048
  2. DEXEDRIN (DEXAMFETAMINE) [Concomitant]
  3. LOESTRIN (ETHINYLESTRADIOL, NORETHISTERONE ACETATE) [Concomitant]
  4. BACLOFEN (BACLOFEN) [Concomitant]
  5. CONTRACEPTIVES (NO INGREDIENTS/SUBSTANCES) [Concomitant]

REACTIONS (1)
  - AMENORRHOEA [None]
